FAERS Safety Report 10497542 (Version 1)
Quarter: 2014Q4

REPORT INFORMATION
  Report Type: Spontaneous
  Country: IT (occurrence: IT)
  Receive Date: 20141006
  Receipt Date: 20141006
  Transmission Date: 20150528
  Serious: Yes (Hospitalization)
  Sender: FDA-Public Use
  Company Number: IT-JNJFOC-20140922647

PATIENT
  Age: 31 Year
  Sex: Male

DRUGS (2)
  1. SODIUM VALPROATE [Suspect]
     Active Substance: VALPROATE SODIUM
     Indication: SCHIZOPHRENIA, UNDIFFERENTIATED TYPE
     Route: 065
  2. RISPERIDONE. [Suspect]
     Active Substance: RISPERIDONE
     Indication: SCHIZOPHRENIA, UNDIFFERENTIATED TYPE
     Dosage: 6MG/D
     Route: 065

REACTIONS (2)
  - Investigation [Unknown]
  - Extrapyramidal disorder [Unknown]
